FAERS Safety Report 5917950-7 (Version None)
Quarter: 2008Q4

REPORT INFORMATION
  Report Type: 
  Country: None (occurrence: None)
  Receive Date: 20081014
  Receipt Date: 20081010
  Transmission Date: 20090506
  Serious: Yes (Death, Hospitalization)
  Sender: FDA-Public Use
  Company Number: AU-BRISTOL-MYERS SQUIBB COMPANY-14205744

PATIENT
  Age: 68 Year
  Sex: Male
  Weight: 72 kg

DRUGS (13)
  1. BLINDED: BRIVANIB ALANINATE [Suspect]
     Indication: COLORECTAL CANCER METASTATIC
     Route: 048
     Dates: start: 20080521, end: 20080601
  2. CETUXIMAB [Suspect]
     Indication: COLORECTAL CANCER METASTATIC
     Dosage: 490MG 28-MAY-2008 CYCLE 2.
     Route: 042
     Dates: start: 20080521
  3. BLINDED: PLACEBO [Suspect]
     Indication: COLORECTAL CANCER METASTATIC
     Route: 048
     Dates: start: 20080521, end: 20080601
  4. ACETAMINOPHEN [Concomitant]
     Indication: BACK PAIN
     Dates: start: 20080501
  5. PANADEINE [Concomitant]
     Indication: BACK PAIN
     Dates: start: 20080501
  6. CODEINE LINCTUS [Concomitant]
     Indication: COUGH
     Dates: start: 20080501
  7. CODEINE LINCTUS [Concomitant]
     Indication: BACK PAIN
     Dates: start: 20080501
  8. MAALOX [Concomitant]
     Indication: NAUSEA
     Dates: start: 20071201
  9. BISOLVON [Concomitant]
     Indication: COUGH
     Dates: start: 20071201
  10. MULTI-VITAMIN [Concomitant]
     Dates: start: 20071201
  11. ZINC [Concomitant]
     Dates: start: 20071201
  12. ACETAMINOPHEN [Concomitant]
     Indication: BACK PAIN
     Dates: start: 20080501
  13. METOCLOPRAMIDE [Concomitant]
     Indication: NAUSEA
     Dates: start: 20071201

REACTIONS (2)
  - DELIRIUM [None]
  - MALIGNANT NEOPLASM PROGRESSION [None]
